FAERS Safety Report 12637448 (Version 1)
Quarter: 2016Q3

REPORT INFORMATION
  Report Type: Spontaneous
  Country: US (occurrence: US)
  Receive Date: 20160809
  Receipt Date: 20160809
  Transmission Date: 20161109
  Serious: No
  Sender: FDA-Public Use
  Company Number: US-BEH-2016062464

PATIENT
  Sex: Female
  Weight: 78 kg

DRUGS (15)
  1. DOXYCYCLINE. [Concomitant]
     Active Substance: DOXYCYCLINE
  2. METROGEL [Concomitant]
     Active Substance: METRONIDAZOLE
  3. L-M-X [Concomitant]
  4. PRIVIGEN [Suspect]
     Active Substance: HUMAN IMMUNOGLOBULIN G
     Indication: CHRONIC INFLAMMATORY DEMYELINATING POLYRADICULONEUROPATHY
     Dosage: AS DIRECTED
     Route: 042
  5. AMITRIPTYLINE [Concomitant]
     Active Substance: AMITRIPTYLINE
  6. FOLTX [Concomitant]
     Active Substance: CYANOCOBALAMIN CO-57\FOLIC ACID\PYRIDOXINE HYDROCHLORIDE
  7. ACYCLOVIR. [Concomitant]
     Active Substance: ACYCLOVIR
  8. HEPARIN [Concomitant]
     Active Substance: HEPARIN SODIUM
  9. EPIPEN [Concomitant]
     Active Substance: EPINEPHRINE
  10. SODIUM CHLORIDE. [Concomitant]
     Active Substance: SODIUM CHLORIDE
  11. PREDNISONE. [Concomitant]
     Active Substance: PREDNISONE
  12. CYPROHEPTADINE. [Concomitant]
     Active Substance: CYPROHEPTADINE
  13. ACETAMINOPHEN. [Concomitant]
     Active Substance: ACETAMINOPHEN
  14. VICODIN [Concomitant]
     Active Substance: ACETAMINOPHEN\HYDROCODONE BITARTRATE
  15. DIPHENHYDRAMINE. [Concomitant]
     Active Substance: DIPHENHYDRAMINE

REACTIONS (2)
  - Product use issue [Unknown]
  - Infection [Unknown]
